FAERS Safety Report 6207513-0 (Version None)
Quarter: 2009Q2

REPORT INFORMATION
  Report Type: 
  Country: None (occurrence: None)
  Receive Date: 20090528
  Receipt Date: 20090518
  Transmission Date: 20091009
  Serious: Yes (Other)
  Sender: FDA-Public Use
  Company Number: FR-BAXTER-2009BH009115

PATIENT
  Sex: Female

DRUGS (1)
  1. ENDOXAN BAXTER [Suspect]
     Route: 040
     Dates: start: 19950801

REACTIONS (1)
  - FRONTAL LOBE EPILEPSY [None]
